FAERS Safety Report 24239788 (Version 2)
Quarter: 2024Q3

REPORT INFORMATION
  Report Type: Spontaneous
  Country: LB (occurrence: None)
  Receive Date: 20240822
  Receipt Date: 20240827
  Transmission Date: 20241016
  Serious: Yes (Hospitalization, Other)
  Sender: ASTRAZENECA
  Company Number: 2024A189229

PATIENT
  Age: 19399 Day
  Sex: Female

DRUGS (3)
  1. ENHERTU [Suspect]
     Active Substance: FAM-TRASTUZUMAB DERUXTECAN-NXKI
     Indication: HER2 positive breast cancer
     Dosage: 3 VIALS PER CYCLE
     Route: 042
     Dates: start: 20230823
  2. IMFINZI [Suspect]
     Active Substance: DURVALUMAB
  3. IMJUDO [Suspect]
     Active Substance: TREMELIMUMAB\TREMELIMUMAB-ACTL
     Route: 042

REACTIONS (4)
  - Lung infiltration [Not Recovered/Not Resolved]
  - Skin toxicity [Not Recovered/Not Resolved]
  - Rash [Not Recovered/Not Resolved]
  - Interstitial lung disease [Not Recovered/Not Resolved]

NARRATIVE: CASE EVENT DATE: 20240808
